FAERS Safety Report 9450447 (Version 1)
Quarter: 2013Q3

REPORT INFORMATION
  Report Type: Spontaneous
  Country: US (occurrence: US)
  Receive Date: 20130809
  Receipt Date: 20130809
  Transmission Date: 20140515
  Serious: No
  Sender: FDA-Public Use
  Company Number: US-PFIZER INC-2013229242

PATIENT
  Age: 63 Year
  Sex: Female
  Weight: 72.56 kg

DRUGS (2)
  1. LIPITOR [Suspect]
     Dosage: 20 MG, DAILY
     Route: 048
     Dates: start: 1998, end: 2004
  2. CRESTOR [Suspect]
     Dosage: UNK
     Dates: end: 2011

REACTIONS (1)
  - Muscle spasms [Recovered/Resolved]
